FAERS Safety Report 14700210 (Version 1)
Quarter: 2018Q1

REPORT INFORMATION
  Report Type: Spontaneous
  Country: TR (occurrence: TR)
  Receive Date: 20180330
  Receipt Date: 20180330
  Transmission Date: 20180509
  Serious: Yes (Life-Threatening)
  Sender: FDA-Public Use
  Company Number: TR-TEVA-2018-TR-874659

PATIENT
  Age: 64 Year
  Sex: Male

DRUGS (1)
  1. AXID [Suspect]
     Active Substance: NIZATIDINE
     Indication: GASTRIC DISORDER
     Dosage: AXID 300 MG CAPSULE
     Route: 048
     Dates: start: 20180317, end: 20180318

REACTIONS (6)
  - Pyrexia [Recovered/Resolved]
  - Chills [Recovered/Resolved]
  - Febrile convulsion [Recovered/Resolved]
  - Fatigue [Recovering/Resolving]
  - Dry mouth [Recovered/Resolved]
  - Hyperhidrosis [Recovered/Resolved]

NARRATIVE: CASE EVENT DATE: 20180318
